FAERS Safety Report 5377388-0 (Version None)
Quarter: 2007Q3

REPORT INFORMATION
  Report Type: 
  Country: None (occurrence: None)
  Receive Date: 20070703
  Receipt Date: 20070702
  Transmission Date: 20080115
  Serious: Yes (Other)
  Sender: FDA-Public Use
  Company Number: A0612251C

PATIENT
  Age: 42 Year
  Sex: Female
  Weight: 67.2 kg

DRUGS (7)
  1. LAPATINIB [Suspect]
     Dosage: 500MG PER DAY
     Route: 048
     Dates: start: 20060623
  2. DOCETAXEL [Suspect]
     Dosage: 60MGM2 CYCLIC
     Route: 042
     Dates: start: 20060623
  3. TRASTUZUMAB [Suspect]
     Dosage: 2MGK WEEKLY
     Route: 042
     Dates: start: 20060623
  4. OXYNORM [Concomitant]
  5. NEURONTIN [Concomitant]
  6. ZOLPIDEM TARTRATE [Concomitant]
  7. CITALOPRAM HYDROBROMIDE [Concomitant]

REACTIONS (1)
  - EJECTION FRACTION DECREASED [None]
